FAERS Safety Report 9153348 (Version 1)
Quarter: 2013Q1

REPORT INFORMATION
  Report Type: Spontaneous
  Country: FR (occurrence: None)
  Receive Date: 20130201
  Receipt Date: 20130201
  Transmission Date: 20140127
  Serious: Yes (Hospitalization)
  Sender: FDA-Public Use
  Company Number: DKLU1088534

PATIENT
  Age: 79 Year
  Sex: Female

DRUGS (12)
  1. ONFI [Suspect]
     Indication: PRODUCT USED FOR UNKNOWN INDICATION
     Route: 048
     Dates: end: 2012
  2. CODEINE PHOSPHATE / ACETAMINOPHEN [Suspect]
     Indication: PRODUCT USED FOR UNKNOWN INDICATION
     Route: 048
     Dates: end: 20120319
  3. ZOLPIDEM TARTRATE [Suspect]
     Indication: PRODUCT USED FOR UNKNOWN INDICATION
     Route: 048
     Dates: end: 20120319
  4. KEPPRA [Suspect]
     Indication: PRODUCT USED FOR UNKNOWN INDICATION
     Route: 048
     Dates: end: 2010
  5. FUROSEMIDE [Concomitant]
  6. KALEORID [Concomitant]
  7. VALIUM [Suspect]
  8. MOVICOL [Concomitant]
  9. LATANOPROST [Concomitant]
  10. CARTEOL (ATENOLOL) [Concomitant]
  11. SPASFON (PHLOROGLUCINOL) [Concomitant]
  12. SERESTA (OXAZEPAM) [Concomitant]

REACTIONS (7)
  - Weight decreased [None]
  - Balance disorder [None]
  - Dry mouth [None]
  - General physical health deterioration [None]
  - Decreased appetite [None]
  - Sleep disorder [None]
  - Incorrect route of drug administration [None]
